FAERS Safety Report 7368489-6 (Version None)
Quarter: 2011Q1

REPORT INFORMATION
  Report Type: 
  Country: None (occurrence: None)
  Receive Date: 20110323
  Receipt Date: 20110317
  Transmission Date: 20110831
  Serious: Yes (Disabling, Other)
  Sender: FDA-Public Use
  Company Number: US-JNJFOC-20100806242

PATIENT
  Sex: Female

DRUGS (2)
  1. LEVAQUIN [Suspect]
     Indication: ASTHMA
     Route: 048
  2. LEVAQUIN [Suspect]
     Indication: INFECTION
     Route: 048

REACTIONS (1)
  - ROTATOR CUFF SYNDROME [None]
